FAERS Safety Report 4543053-2 (Version None)
Quarter: 2004Q4

REPORT INFORMATION
  Report Type: 
  Country: None (occurrence: None)
  Receive Date: 20041229
  Receipt Date: 20041229
  Transmission Date: 20050328
  Serious: No
  Sender: FDA-Public Use
  Company Number: None

PATIENT
  Age: 75 Year
  Sex: Female
  Weight: 122.9248 kg

DRUGS (4)
  1. HUMIRA [Suspect]
     Indication: RHEUMATOID ARTHRITIS
     Dosage: 40 MG  EVERY 2 WEEKS  SUBCUTANEO
     Route: 058
     Dates: start: 20030501, end: 20041130
  2. REMICADE [Suspect]
     Dosage: 300 MG   EVERY 2 MONTHS  INTRAVENOU
     Route: 042
     Dates: start: 20010613, end: 20030219
  3. METHOTREXATE [Concomitant]
  4. CELEBREX [Concomitant]

REACTIONS (1)
  - BREAST CANCER [None]
